FAERS Safety Report 8008585-3 (Version None)
Quarter: 2011Q4

REPORT INFORMATION
  Report Type: 
  Country: None (occurrence: None)
  Receive Date: 20111227
  Receipt Date: 20111213
  Transmission Date: 20120403
  Serious: Yes (Hospitalization, Other)
  Sender: FDA-Public Use
  Company Number: US-ROCHE-1012083

PATIENT
  Sex: Female
  Weight: 52.21 kg

DRUGS (10)
  1. SANCUSO [Concomitant]
     Indication: NAUSEA
     Dates: start: 20111001
  2. OXYCODONE HCL [Concomitant]
     Indication: PAIN
     Dates: start: 20110701
  3. MAGNESIUM HYDROXIDE TAB [Concomitant]
     Indication: CONSTIPATION
     Dosage: 30 CC
     Route: 048
     Dates: start: 20110901
  4. ATIVAN [Concomitant]
     Indication: NAUSEA
     Route: 048
     Dates: start: 20111001
  5. FENTANYL-100 [Concomitant]
     Indication: PAIN
     Dates: start: 20110701
  6. RITALIN [Concomitant]
     Route: 048
     Dates: start: 20111001
  7. AVASTIN [Suspect]
     Indication: RENAL CANCER
     Route: 042
     Dates: start: 20111013, end: 20111103
  8. COMPAZINE [Concomitant]
     Indication: NAUSEA
  9. SENOKOT [Concomitant]
     Indication: CONSTIPATION
     Route: 048
     Dates: start: 20110901
  10. XANAX [Concomitant]
     Indication: ANXIETY
     Dates: start: 20111001

REACTIONS (1)
  - PLEURAL EFFUSION [None]
